FAERS Safety Report 7898173-1 (Version None)
Quarter: 2011Q4

REPORT INFORMATION
  Report Type: 
  Country: None (occurrence: None)
  Receive Date: 20111107
  Receipt Date: 20111027
  Transmission Date: 20120403
  Serious: Yes (Other)
  Sender: FDA-Public Use
  Company Number: BR-SANOFI-AVENTIS-2011SA071060

PATIENT
  Age: 75 Year
  Sex: Male
  Weight: 64 kg

DRUGS (6)
  1. CLIKSTAR [Suspect]
     Indication: DEVICE THERAPY
  2. BETASERC [Concomitant]
     Indication: BALANCE DISORDER
     Route: 048
  3. GAMMA-AMINOBUTYRIC ACID [Concomitant]
     Route: 048
  4. LANTUS [Suspect]
     Indication: TYPE 2 DIABETES MELLITUS
     Route: 058
  5. CILOSTAZOL [Concomitant]
     Route: 048
  6. PROPAFENONE HYDROCHLORIDE [Concomitant]
     Route: 048

REACTIONS (6)
  - INCOHERENT [None]
  - DIZZINESS [None]
  - ARTERIOSCLEROSIS [None]
  - HYPOGLYCAEMIA [None]
  - CEREBRAL ISCHAEMIA [None]
  - BALANCE DISORDER [None]
